FAERS Safety Report 24781227 (Version 1)
Quarter: 2024Q4

REPORT INFORMATION
  Report Type: Spontaneous
  Country: US (occurrence: US)
  Receive Date: 20241227
  Receipt Date: 20241227
  Transmission Date: 20250115
  Serious: Yes (Other)
  Sender: DR REDDYS
  Company Number: US-DRL-USA-SPO/USA/24/0019144

PATIENT
  Age: 54 Year
  Sex: Female

DRUGS (1)
  1. LENALIDOMIDE [Suspect]
     Active Substance: LENALIDOMIDE
     Indication: Plasma cell myeloma
     Dosage: LENALIDOMIDE CAPSULES 10 MG, 28 COUNT;?PATIENT WAS ON A MAINTENANCE DOSE OF LENALIDOMIDE
     Route: 065

REACTIONS (4)
  - Plasma cell myeloma refractory [Unknown]
  - Spinal cord compression [Unknown]
  - Drug ineffective [Unknown]
  - Malaise [Unknown]
